FAERS Safety Report 4977411-9 (Version None)
Quarter: 2006Q2

REPORT INFORMATION
  Report Type: 
  Country: None (occurrence: None)
  Receive Date: 20060413
  Receipt Date: 20060331
  Transmission Date: 20061013
  Serious: Yes (Hospitalization)
  Sender: FDA-Public Use
  Company Number: TCI2006A00674

PATIENT
  Age: 85 Year
  Sex: Male

DRUGS (4)
  1. LEUPLIN FOR INJECTION KIT3.75 (LEUPRORELIN ACETATE FOR DEPOT SUSPENSIO [Suspect]
     Indication: PROSTATE CANCER
     Dosage: 3.75 MG (3.75 MG, 1 IN 28 D)
     Route: 058
     Dates: start: 20050608, end: 20060201
  2. CASODEX [Suspect]
     Indication: PROSTATE CANCER
     Dosage: 80 MG (80 MG, 1 IN 1 D)
     Route: 048
     Dates: start: 20051207, end: 20060201
  3. URSO (UROSDEOXYCHOLIC ACID) [Concomitant]
  4. CHLORMADINONE ACETATE TAB [Concomitant]

REACTIONS (8)
  - ASCITES [None]
  - ASPARTATE AMINOTRANSFERASE INCREASED [None]
  - CHOLELITHIASIS [None]
  - HEPATIC CYST [None]
  - JAUNDICE [None]
  - LYMPH NODE CALCIFICATION [None]
  - PANCREATITIS [None]
  - PLEURAL EFFUSION [None]
